FAERS Safety Report 4779267-6 (Version None)
Quarter: 2005Q3

REPORT INFORMATION
  Report Type: 
  Country: None (occurrence: None)
  Receive Date: 20050914
  Receipt Date: 20050802
  Transmission Date: 20060218
  Serious: Yes (Other)
  Sender: FDA-Public Use
  Company Number: 413007

PATIENT
  Age: 77 Year
  Sex: Male

DRUGS (2)
  1. BONIVA [Suspect]
     Indication: DRUG USE FOR UNKNOWN INDICATION
     Dosage: 150 MG 1 PER MONTH ORAL
     Route: 048
     Dates: start: 20050801
  2. KLONOPIN [Suspect]
     Dosage: ORAL
     Route: 048

REACTIONS (7)
  - CHILLS [None]
  - DIZZINESS [None]
  - DRUG INTERACTION [None]
  - DYSSTASIA [None]
  - PYREXIA [None]
  - THINKING ABNORMAL [None]
  - TREMOR [None]
